FAERS Safety Report 13566872 (Version 1)
Quarter: 2017Q2

REPORT INFORMATION
  Report Type: Spontaneous
  Country: GB (occurrence: GB)
  Receive Date: 20170522
  Receipt Date: 20170522
  Transmission Date: 20170830
  Serious: Yes (Hospitalization)
  Sender: FDA-Public Use
  Company Number: GB-ACCORD-051615

PATIENT
  Age: 83 Year
  Sex: Female

DRUGS (10)
  1. RAMIPRIL. [Suspect]
     Active Substance: RAMIPRIL
     Indication: HYPERTENSION
     Route: 048
  2. FUROSEMIDE. [Suspect]
     Active Substance: FUROSEMIDE
     Indication: PRODUCT USED FOR UNKNOWN INDICATION
  3. ADIZEM [Concomitant]
     Active Substance: DILTIAZEM HYDROCHLORIDE
  4. QUININE [Concomitant]
     Active Substance: QUININE
  5. DIGOXIN. [Concomitant]
     Active Substance: DIGOXIN
  6. GAVISCON [Concomitant]
     Active Substance: ALUMINUM HYDROXIDE\MAGNESIUM CARBONATE
  7. WARFARIN [Concomitant]
     Active Substance: WARFARIN
  8. AMLODIPINE [Concomitant]
     Active Substance: AMLODIPINE BESYLATE
  9. LACTULOSE. [Concomitant]
     Active Substance: LACTULOSE
  10. SENNA ALEXANDRINA [Concomitant]
     Active Substance: SENNA LEAF

REACTIONS (6)
  - Adrenal mass [Unknown]
  - Hyponatraemia [Recovered/Resolved]
  - Wheezing [Unknown]
  - Fall [Unknown]
  - Thrombocytosis [Unknown]
  - Lower respiratory tract infection [Unknown]
